FAERS Safety Report 13193043 (Version 1)
Quarter: 2017Q1

REPORT INFORMATION
  Report Type: Spontaneous
  Country: US (occurrence: US)
  Receive Date: 20170207
  Receipt Date: 20170207
  Transmission Date: 20170428
  Serious: No
  Sender: FDA-Public Use
  Company Number: US-GLAXOSMITHKLINE-US2017GSK016845

PATIENT
  Age: 85 Year
  Sex: Female

DRUGS (2)
  1. ANORO ELLIPTA [Suspect]
     Active Substance: UMECLIDINIUM BROMIDE\VILANTEROL TRIFENATATE
     Indication: PRODUCT USED FOR UNKNOWN INDICATION
  2. XARELTO [Concomitant]
     Active Substance: RIVAROXABAN

REACTIONS (3)
  - Drug dose omission [Unknown]
  - General physical health deterioration [Unknown]
  - Intentional product use issue [Unknown]
